FAERS Safety Report 5397821-8 (Version None)
Quarter: 2007Q3

REPORT INFORMATION
  Report Type: 
  Country: None (occurrence: None)
  Receive Date: 20070723
  Receipt Date: 20070711
  Transmission Date: 20080115
  Serious: Yes (Life-Threatening, Hospitalization)
  Sender: FDA-Public Use
  Company Number: GXKR2007GB05995

PATIENT
  Age: 77 Year
  Sex: Male

DRUGS (13)
  1. DOXYCYCLINE [Suspect]
     Indication: STAPHYLOCOCCAL INFECTION
     Dosage: 100 MG, QD; ORAL
     Route: 048
     Dates: start: 20070326, end: 20070427
  2. FUSIDIC ACID [Suspect]
     Indication: STAPHYLOCOCCAL INFECTION
     Dosage: 500 MG, TID; ORAL
     Route: 048
     Dates: start: 20070326, end: 20070430
  3. ACETYLSALICYLIC ACID SRT [Concomitant]
  4. ATENOLOL [Concomitant]
  5. CLOPIDOGREL [Concomitant]
  6. FOROSEMIDE (FUROSEMIDE) [Concomitant]
  7. GABAPENTIN [Concomitant]
  8. MOVICOL (MACROGOL POTASSIUM CHLORIDE, SODIUM BICARBONATE, SODIUM CHLOR [Concomitant]
  9. MULTIVITAMINS (ASCORBIC ACID, ERGOCALCIFEROL, FOLIC ACID, NICOTINAMIDE [Concomitant]
  10. OMEPRAZOLE [Concomitant]
  11. ACETAMINOPHEN [Concomitant]
  12. SIMVASTATIN [Concomitant]
  13. OXYCONTIN [Concomitant]

REACTIONS (1)
  - HEPATITIS [None]
